FAERS Safety Report 5690314-X (Version None)
Quarter: 2008Q1

REPORT INFORMATION
  Report Type: 
  Country: None (occurrence: None)
  Receive Date: 20080331
  Receipt Date: 20080331
  Transmission Date: 20080703
  Serious: Yes (Life-Threatening, Hospitalization)
  Sender: FDA-Public Use
  Company Number: None

PATIENT
  Age: 46 Year
  Sex: Female
  Weight: 102.0593 kg

DRUGS (1)
  1. CALAN [Suspect]
     Indication: HYPERTENSION
     Dates: start: 19960101, end: 19960630

REACTIONS (2)
  - CARDIAC FAILURE CONGESTIVE [None]
  - VIRAL INFECTION [None]
